FAERS Safety Report 13019222 (Version 1)
Quarter: 2016Q4

REPORT INFORMATION
  Report Type: Spontaneous
  Country: US (occurrence: US)
  Receive Date: 20161212
  Receipt Date: 20161212
  Transmission Date: 20170207
  Serious: Yes (Other)
  Sender: FDA-Public Use
  Company Number: US-ROCHE-1713391

PATIENT

DRUGS (2)
  1. RANIBIZUMAB [Suspect]
     Active Substance: RANIBIZUMAB
     Indication: PRODUCT USED FOR UNKNOWN INDICATION
     Dosage: 3 INJECTIONS
     Route: 050
  2. BETADINE [Concomitant]
     Active Substance: POVIDONE-IODINE
     Dosage: 5 %
     Route: 065

REACTIONS (1)
  - Endophthalmitis [Unknown]
